FAERS Safety Report 20461574 (Version 1)
Quarter: 2022Q1

REPORT INFORMATION
  Report Type: Spontaneous
  Country: US (occurrence: US)
  Receive Date: 20220211
  Receipt Date: 20220211
  Transmission Date: 20220423
  Serious: No
  Sender: FDA-Public Use
  Company Number: US-PFIZER INC-202200057823

PATIENT
  Age: 71 Year

DRUGS (3)
  1. CIPROFLOXACIN [Suspect]
     Active Substance: CIPROFLOXACIN
     Dosage: UNK
  2. LETROZOLE [Concomitant]
     Active Substance: LETROZOLE
     Dosage: 2.5 MG
  3. IBRANCE [Concomitant]
     Active Substance: PALBOCICLIB
     Dosage: 75 MG, CYCLIC (DAILY FOR 3 WEEKS ON AND 1 WEEK OFF)
     Route: 048

REACTIONS (2)
  - Drug hypersensitivity [Unknown]
  - Urticaria [Unknown]
